FAERS Safety Report 5746227-8 (Version None)
Quarter: 2008Q2

REPORT INFORMATION
  Report Type: 
  Country: None (occurrence: None)
  Receive Date: 20080522
  Receipt Date: 20080513
  Transmission Date: 20081010
  Serious: Yes (Other)
  Sender: FDA-Public Use
  Company Number: US-ROCHE-445753

PATIENT
  Sex: Female
  Weight: 75.3 kg

DRUGS (6)
  1. BONIVA [Suspect]
     Indication: OSTEOPENIA
     Dosage: 1 DOSE ONLY.
     Route: 048
     Dates: start: 20060422, end: 20060422
  2. CALCIUM [Concomitant]
  3. AMBIEN [Concomitant]
     Indication: INSOMNIA
     Dosage: EVERY BEDTIME
  4. KLONOPIN [Concomitant]
  5. REQUIP [Concomitant]
     Dosage: EVERY BEDTIME
  6. DIOVAN [Concomitant]
     Dosage: DOSE: 160/12.5 DAILY

REACTIONS (15)
  - ARTHRALGIA [None]
  - ASTHENIA [None]
  - BACK PAIN [None]
  - CHEST PAIN [None]
  - DIARRHOEA [None]
  - DYSPHAGIA [None]
  - EAR PAIN [None]
  - ECZEMA [None]
  - FALL [None]
  - ILL-DEFINED DISORDER [None]
  - MUSCULOSKELETAL PAIN [None]
  - MYALGIA [None]
  - SINUSITIS [None]
  - URINARY TRACT INFECTION [None]
  - VISION BLURRED [None]
